FAERS Safety Report 4556986-8 (Version None)
Quarter: 2005Q1

REPORT INFORMATION
  Report Type: 
  Country: None (occurrence: None)
  Receive Date: 20050114
  Receipt Date: 20050107
  Transmission Date: 20050727
  Serious: Yes (Death)
  Sender: FDA-Public Use
  Company Number: 2004UW24380

PATIENT
  Age: 19 Year
  Sex: Female
  Weight: 90.7194 kg

DRUGS (16)
  1. SEROQUEL [Suspect]
     Indication: PSYCHOTIC DISORDER
     Dosage: 200 MG HS PO
     Route: 048
     Dates: start: 20040830
  2. RISPERDAL [Suspect]
     Indication: PSYCHOTIC DISORDER
     Dosage: 1 MG QAM PO
     Route: 048
     Dates: start: 20041022
  3. RISPERDAL [Suspect]
     Indication: PSYCHOTIC DISORDER
     Dosage: 0.5 MG QAM
     Dates: end: 20041019
  4. CARBATROL [Suspect]
     Indication: AFFECTIVE DISORDER
     Dosage: 300 MG Q12H PO
     Route: 048
     Dates: start: 20041019
  5. ZITHROMAX [Concomitant]
  6. ORTHO TRI-CYCLEN [Concomitant]
  7. FLONASE [Concomitant]
  8. MAXALT-MLT [Concomitant]
  9. MOTRIN [Concomitant]
  10. LIDOCAINE JELLY [Concomitant]
  11. ALBUTEROL [Concomitant]
  12. PEPCID [Concomitant]
  13. CLEOCIN T [Concomitant]
  14. FLEXERIL [Concomitant]
  15. ICY HOT [Concomitant]
  16. DEPO-PROVERA [Concomitant]

REACTIONS (9)
  - ASTHMA [None]
  - BRONCHITIS [None]
  - CIRCULATORY COLLAPSE [None]
  - DIZZINESS [None]
  - FATIGUE [None]
  - FEELING ABNORMAL [None]
  - LOSS OF CONSCIOUSNESS [None]
  - PAIN IN EXTREMITY [None]
  - PULMONARY EMBOLISM [None]
